FAERS Safety Report 7350957 (Version 2)
Quarter: 2013Q3

REPORT INFORMATION
  Report Type: Spontaneous
  Country: CA (occurrence: None)
  Receive Date: 20100324
  Receipt Date: 20130730
  Transmission Date: 20140515
  Serious: Yes (Death, Hospitalization)
  Sender: FDA-Public Use
  Company Number: VAL_00389_2010

PATIENT
  Age: 8 Month
  Sex: Male

DRUGS (15)
  1. CALCITRIOL [Suspect]
     Indication: PRODUCT USED FOR UNKNOWN INDICATION
     Dosage: 0.1 UG,DF
  2. CELLCEPT [Suspect]
     Indication: PROPHYLAXIS AGAINST TRANSPLANT REJECTION
     Dosage: (300 MG BID ORAL)
     Route: 048
     Dates: end: 20090612
  3. ARANESP [Suspect]
     Indication: RENAL FAILURE CHRONIC
     Dosage: DF, SUBCUTANEOUS
     Route: 058
     Dates: start: 200903, end: 20090504
  4. TACROLIMUS [Concomitant]
  5. ETACRYNIC ACID [Concomitant]
  6. METOLAZONE [Concomitant]
  7. SODIUM CHLORIDE [Concomitant]
  8. CLOBAZAM [Concomitant]
  9. LEVETIRACETAM [Concomitant]
  10. DOMPERIDONE [Concomitant]
  11. OMEPRAZOLE [Concomitant]
  12. ENALAPRIL [Concomitant]
  13. FUROSEMIDE [Concomitant]
  14. TOPIRAMATE [Concomitant]
  15. SPIRONOLACTONE AND HYDROCHLOROTHIAZIDE [Concomitant]

REACTIONS (13)
  - Aplasia pure red cell [None]
  - Staphylococcal infection [None]
  - Device related infection [None]
  - Enterococcal infection [None]
  - Respiratory distress [None]
  - Wheezing [None]
  - Vena cava thrombosis [None]
  - Jugular vein thrombosis [None]
  - Subclavian vein thrombosis [None]
  - Peripheral artery thrombosis [None]
  - Neutrophil count decreased [None]
  - Developmental delay [None]
  - Cytogenetic abnormality [None]
